FAERS Safety Report 15203614 (Version 2)
Quarter: 2018Q3

REPORT INFORMATION
  Report Type: Spontaneous
  Country: US (occurrence: US)
  Receive Date: 20180726
  Receipt Date: 20180726
  Transmission Date: 20181010
  Serious: Yes (Other)
  Sender: FDA-Public Use
  Company Number: US-SHIRE-US201827773

PATIENT
  Age: 41 Year
  Sex: Female

DRUGS (1)
  1. CUVITRU [Suspect]
     Active Substance: HUMAN IMMUNOGLOBULIN G
     Indication: IMMUNODEFICIENCY COMMON VARIABLE
     Dosage: 11 G, 1X/WEEK (EVERY 7 DAYS)
     Route: 058
     Dates: start: 20180629

REACTIONS (4)
  - Pain [Recovered/Resolved]
  - Anal haemorrhage [Recovered/Resolved]
  - Headache [Recovered/Resolved]
  - Blood glucose decreased [Recovered/Resolved]

NARRATIVE: CASE EVENT DATE: 20180715
